FAERS Safety Report 9394556 (Version 1)
Quarter: 2013Q3

REPORT INFORMATION
  Report Type: Spontaneous
  Country: US (occurrence: US)
  Receive Date: 20130711
  Receipt Date: 20130711
  Transmission Date: 20140515
  Serious: Yes (Hospitalization, Other)
  Sender: FDA-Public Use
  Company Number: PHEH2013US014287

PATIENT
  Age: 81 Year
  Sex: Male

DRUGS (1)
  1. VALTURNA [Suspect]
     Indication: BLOOD PRESSURE ABNORMAL
     Dosage: UNK UKN, UNK
     Dates: start: 201007, end: 201112

REACTIONS (14)
  - Cerebral infarction [Unknown]
  - VIIth nerve paralysis [Unknown]
  - Asthenia [Unknown]
  - Dysarthria [Unknown]
  - Cardiac failure congestive [Unknown]
  - Cardiomyopathy [Unknown]
  - Brain stem infarction [Unknown]
  - Hypertensive crisis [Unknown]
  - Dyslipidaemia [Unknown]
  - Blindness unilateral [Unknown]
  - Cerebrovascular accident [Unknown]
  - Balance disorder [Unknown]
  - Muscle spasticity [Unknown]
  - Movement disorder [Unknown]
